FAERS Safety Report 7928664-6 (Version None)
Quarter: 2011Q4

REPORT INFORMATION
  Report Type: 
  Country: None (occurrence: None)
  Receive Date: 20111118
  Receipt Date: 20111109
  Transmission Date: 20120403
  Serious: Yes (Hospitalization, Other)
  Sender: FDA-Public Use
  Company Number: US-ASTRAZENECA-2011SE49536

PATIENT
  Sex: Female

DRUGS (3)
  1. PREDNISONE TAB [Concomitant]
  2. ZANTAC [Concomitant]
  3. NEXIUM [Suspect]
     Route: 048

REACTIONS (12)
  - ULCER [None]
  - GASTROINTESTINAL INFECTION [None]
  - GASTROINTESTINAL DISORDER [None]
  - INCORRECT DOSE ADMINISTERED [None]
  - UPPER LIMB FRACTURE [None]
  - ACCIDENT [None]
  - ADDISON'S DISEASE [None]
  - FALL [None]
  - TOOTH LOSS [None]
  - MALAISE [None]
  - DRUG DOSE OMISSION [None]
  - RIB FRACTURE [None]
